FAERS Safety Report 18953434 (Version 1)
Quarter: 2021Q1

REPORT INFORMATION
  Report Type: Spontaneous
  Country: US (occurrence: US)
  Receive Date: 20210227
  Receipt Date: 20210227
  Transmission Date: 20210420
  Serious: Yes (Hospitalization)
  Sender: FDA-Public Use
  Company Number: None

PATIENT
  Age: 24 Year
  Sex: Female
  Weight: 72.85 kg

DRUGS (1)
  1. IPILIMUMAB (BMS?734016; MDX?010 TRANSFECTOMA?DERIVED) [Suspect]
     Active Substance: IPILIMUMAB
     Dates: end: 20161219

REACTIONS (9)
  - Fibrin D dimer increased [None]
  - Dyspnoea [None]
  - Pyrexia [None]
  - Tachycardia [None]
  - Lung opacity [None]
  - Cough [None]
  - Tachypnoea [None]
  - Pneumonia [None]
  - Sepsis [None]

NARRATIVE: CASE EVENT DATE: 20170120
